FAERS Safety Report 10012535 (Version 1)
Quarter: 2014Q1

REPORT INFORMATION
  Report Type: Spontaneous
  Country: FR (occurrence: FR)
  Receive Date: 20140314
  Receipt Date: 20140314
  Transmission Date: 20141002
  Serious: Yes (Life-Threatening, Hospitalization)
  Sender: FDA-Public Use
  Company Number: FR-BRISTOL-MYERS SQUIBB COMPANY-20351482

PATIENT
  Age: 7 Day
  Sex: Female
  Weight: 3.35 kg

DRUGS (3)
  1. ABILIFY TABS [Suspect]
     Indication: BIPOLAR DISORDER
  2. SEROPRAM [Suspect]
  3. ALDOMET [Suspect]

REACTIONS (5)
  - Pulmonary arterial hypertension [Not Recovered/Not Resolved]
  - Hypertension [Not Recovered/Not Resolved]
  - Renal artery stenosis [Not Recovered/Not Resolved]
  - Hypertrophic cardiomyopathy [Not Recovered/Not Resolved]
  - Foetal exposure during pregnancy [Unknown]
